FAERS Safety Report 25309916 (Version 1)
Quarter: 2025Q2

REPORT INFORMATION
  Report Type: Spontaneous
  Country: GB (occurrence: GB)
  Receive Date: 20250514
  Receipt Date: 20250514
  Transmission Date: 20250717
  Serious: Yes (Hospitalization, Other)
  Sender: DEXCEL
  Company Number: None

PATIENT
  Age: 88 Year
  Sex: Female

DRUGS (9)
  1. FamotidineFAMOTIDINE (Specific Substance SUB5582) [Concomitant]
  2. Macrogol compound oral powder sachetsMACROGOL (Specific Substance S... [Concomitant]
  3. SalbutamolSALBUTAMOL (Specific Substance SUB356) [Concomitant]
  4. sennaSENNA (Specific Substance SUB381) [Concomitant]
  5. EdoxabanEDOXABAN (Specific Substance SUB11690) [Concomitant]
  6. AtorvastatinATORVASTATIN (Specific Substance SUB7358) [Concomitant]
  7. TrimbowTRIMBOW (Specific MP Group PGR5432248) [Concomitant]
  8. OMEPRAZOLE [Suspect]
     Active Substance: OMEPRAZOLE
  9. CarmelloseCARMELLOSE (Specific Substance SUB1578) [Concomitant]

REACTIONS (1)
  - Hyponatraemia [Recovered/Resolved]
